FAERS Safety Report 4724415-7 (Version None)
Quarter: 2005Q3

REPORT INFORMATION
  Report Type: 
  Country: None (occurrence: None)
  Receive Date: 20050722
  Receipt Date: 20050722
  Transmission Date: 20060218
  Serious: No
  Sender: FDA-Public Use
  Company Number: None

PATIENT
  Sex: Male
  Weight: 78.4723 kg

DRUGS (2)
  1. PARAPLATIN 1.4 ALIC [Suspect]
     Indication: NEOPLASM MALIGNANT
     Dosage: IV WEEKLY
     Route: 042
     Dates: start: 20050713
  2. CAPECITABINE 800 MG BID [Suspect]
     Indication: NEOPLASM MALIGNANT
     Dosage: PO TWO 14-DAY CYCLES
     Route: 048

REACTIONS (3)
  - BLOOD CREATININE INCREASED [None]
  - DEHYDRATION [None]
  - HYPOTENSION [None]
